FAERS Safety Report 6663356-5 (Version None)
Quarter: 2010Q2

REPORT INFORMATION
  Report Type: 
  Country: None (occurrence: None)
  Receive Date: 20100401
  Receipt Date: 20100325
  Transmission Date: 20101027
  Serious: Yes (Other)
  Sender: FDA-Public Use
  Company Number: US-NOVOPROD-306203

PATIENT
  Sex: Female

DRUGS (2)
  1. NOVOLOG [Suspect]
     Indication: DIABETES MELLITUS
     Dosage: UNK
     Route: 058
     Dates: start: 20050101
  2. LANTUS [Suspect]
     Indication: DIABETES MELLITUS
     Dosage: 100 IU, UNK
     Route: 058
     Dates: start: 20050101

REACTIONS (2)
  - CEREBROVASCULAR ACCIDENT [None]
  - MACULAR DEGENERATION [None]
